FAERS Safety Report 9746806 (Version 1)
Quarter: 2013Q4

REPORT INFORMATION
  Report Type: Report from Study
  Country: FR (occurrence: FR)
  Receive Date: 20131211
  Receipt Date: 20131211
  Transmission Date: 20140711
  Serious: Yes (Hospitalization, Other)
  Sender: FDA-Public Use
  Company Number: PHHY2013FR143947

PATIENT
  Sex: Male

DRUGS (7)
  1. EVEROLIMUS [Suspect]
     Indication: RENAL TRANSPLANT
     Dosage: 2.5 MG, UNK
     Route: 048
     Dates: start: 20120622
  2. NEORAL [Suspect]
     Indication: RENAL TRANSPLANT
     Dosage: 440 MG, (220 MG, 2 IN 1D)
     Dates: start: 20120509, end: 20120619
  3. NEORAL [Suspect]
     Dosage: 220 MG, UNK
  4. CELLCEPT [Suspect]
     Indication: RENAL TRANSPLANT
     Dosage: 1 G (2 IN 1-2)
     Route: 048
     Dates: start: 20120508
  5. CELLCEPT [Suspect]
     Dosage: 1.5 G, BID
  6. PROGRAF [Suspect]
     Indication: RENAL TRANSPLANT
     Dosage: 5 G, UNK
     Route: 048
  7. SOLUPRED [Suspect]
     Indication: RENAL TRANSPLANT
     Dosage: UNK UKN, UNK
     Route: 048
     Dates: start: 20120509

REACTIONS (8)
  - Acute coronary syndrome [Not Recovered/Not Resolved]
  - Pyelocaliectasis [Recovered/Resolved]
  - Perirenal haematoma [Not Recovered/Not Resolved]
  - Renal abscess [Unknown]
  - Complications of transplanted kidney [Unknown]
  - Renal failure acute [Recovered/Resolved]
  - Anaemia [Not Recovered/Not Resolved]
  - Urinary fistula [Unknown]
